FAERS Safety Report 15839096 (Version 1)
Quarter: 2019Q1

REPORT INFORMATION
  Report Type: Spontaneous
  Country: US (occurrence: US)
  Receive Date: 20190117
  Receipt Date: 20190117
  Transmission Date: 20190417
  Serious: No
  Sender: FDA-Public Use
  Company Number: US-PFIZER INC-2019021895

PATIENT
  Age: 19 Year
  Sex: Female

DRUGS (3)
  1. GENOTROPIN MQ [Suspect]
     Active Substance: SOMATROPIN
     Dosage: UNK (3 DAYS A WEEK)
  2. GENOTROPIN MQ [Suspect]
     Active Substance: SOMATROPIN
     Indication: BLOOD GROWTH HORMONE ABNORMAL
     Dosage: 0.2 MG, DAILY (7 DAYS A WEEK DOSING)
     Dates: start: 20180215
  3. GENOTROPIN MQ [Suspect]
     Active Substance: SOMATROPIN
     Dosage: UNK (6 DAYS A WEEK)

REACTIONS (6)
  - Headache [Recovering/Resolving]
  - Blood prolactin increased [Unknown]
  - Fatigue [Recovering/Resolving]
  - Asthenia [Unknown]
  - Insulin-like growth factor decreased [Unknown]
  - Bone densitometry [Unknown]

NARRATIVE: CASE EVENT DATE: 20180410
